FAERS Safety Report 9994172 (Version 1)
Quarter: 2014Q1

REPORT INFORMATION
  Report Type: Spontaneous
  Country: CA (occurrence: CA)
  Receive Date: 20140310
  Receipt Date: 20140310
  Transmission Date: 20141002
  Serious: Yes (Hospitalization, Disabling, Other)
  Sender: FDA-Public Use
  Company Number: CA-009507513-1403CAN003023

PATIENT
  Age: 75 Year
  Sex: Female
  Weight: 60.77 kg

DRUGS (4)
  1. FOSAMAX [Suspect]
     Dosage: 70 MG, QW
     Route: 048
  2. GABAPENTIN [Concomitant]
  3. HYDROXYCHLOROQUINE SULFATE [Concomitant]
  4. LEVOTHYROXINE SODIUM [Concomitant]

REACTIONS (2)
  - Fall [Unknown]
  - Femur fracture [Unknown]
